FAERS Safety Report 4289670-9 (Version None)
Quarter: 2004Q1

REPORT INFORMATION
  Report Type: 
  Country: None (occurrence: None)
  Receive Date: 20040203
  Receipt Date: 20030623
  Transmission Date: 20041129
  Serious: Yes (Life-Threatening, Hospitalization, Other)
  Sender: FDA-Public Use
  Company Number: 200319548BWH

PATIENT
  Age: 92 Year
  Sex: Male

DRUGS (21)
  1. AVELOX [Suspect]
     Indication: EYE PAIN
     Dosage: 400 MG, QD, ORAL
     Route: 048
     Dates: start: 20030620
  2. AVELOX [Suspect]
     Indication: SINUSITIS
     Dosage: 400 MG, QD, ORAL
     Route: 048
     Dates: start: 20030620
  3. FLUOCINONIDE [Concomitant]
  4. NASONEX [Concomitant]
  5. MYCOLOG [Concomitant]
  6. PROMETHAZINE VC PLAIN [Concomitant]
  7. ASPIRIN [Concomitant]
  8. COZAAR [Concomitant]
  9. DYNACIRC [Concomitant]
  10. FOLIC ACID [Concomitant]
  11. LASIX [Concomitant]
  12. HYDROXYZINE [Concomitant]
  13. LIPITOR [Concomitant]
  14. POTSSIUM CHLORIDE [Concomitant]
  15. PROSCAR [Concomitant]
  16. TYLENOL PM [Concomitant]
  17. VIOXX [Concomitant]
  18. VITAMIN B COMPLEX CAP [Concomitant]
  19. VITAMIN E [Concomitant]
  20. AMBIEN [Concomitant]
  21. FLOMAXX [Concomitant]

REACTIONS (6)
  - ANAPHYLACTIC REACTION [None]
  - CIRCULATORY COLLAPSE [None]
  - HOARSENESS [None]
  - RESPIRATORY DISTRESS [None]
  - SWOLLEN TONGUE [None]
  - WHEEZING [None]
